FAERS Safety Report 10154586 (Version 2)
Quarter: 2014Q2

REPORT INFORMATION
  Report Type: Spontaneous
  Country: JP (occurrence: JP)
  Receive Date: 20140506
  Receipt Date: 20140506
  Transmission Date: 20141212
  Serious: No
  Sender: FDA-Public Use
  Company Number: JP-JNJFOC-20140400019

PATIENT
  Age: 90 Year
  Sex: Male

DRUGS (1)
  1. DUROTEP MT [Suspect]
     Indication: PAIN
     Route: 062
     Dates: start: 2010

REACTIONS (2)
  - Application site pruritus [Recovered/Resolved]
  - Treatment noncompliance [Unknown]
